FAERS Safety Report 14070825 (Version 5)
Quarter: 2017Q4

REPORT INFORMATION
  Report Type: Report from Study
  Country: US (occurrence: US)
  Receive Date: 20171010
  Receipt Date: 20171206
  Transmission Date: 20180321
  Serious: Yes (Hospitalization, Other)
  Sender: FDA-Public Use
  Company Number: US-BAUSCH-BL-2016-023592

PATIENT
  Age: 67 Year
  Sex: Female
  Weight: 76.73 kg

DRUGS (13)
  1. NEURONTIN [Concomitant]
     Active Substance: GABAPENTIN
     Indication: PRODUCT USED FOR UNKNOWN INDICATION
     Route: 048
  2. DULERA [Concomitant]
     Active Substance: FORMOTEROL FUMARATE DIHYDRATE\MOMETASONE FUROATE
     Indication: PRODUCT USED FOR UNKNOWN INDICATION
  3. XIFAXAN [Suspect]
     Active Substance: RIFAXIMIN
     Indication: DIARRHOEA
     Route: 048
     Dates: start: 20141009
  4. LACTULOSE. [Suspect]
     Active Substance: LACTULOSE
     Dosage: 3 WEEKS AGO
     Route: 065
     Dates: start: 201710
  5. ZOFRAN [Concomitant]
     Active Substance: ONDANSETRON HYDROCHLORIDE
     Indication: PRODUCT USED FOR UNKNOWN INDICATION
     Dosage: AS NEEDED
  6. LACTULOSE. [Suspect]
     Active Substance: LACTULOSE
     Indication: PRODUCT USED FOR UNKNOWN INDICATION
     Route: 065
     Dates: start: 20150109
  7. METFORMIN [Concomitant]
     Active Substance: METFORMIN HYDROCHLORIDE
     Indication: PRODUCT USED FOR UNKNOWN INDICATION
     Dosage: AT BEDTIME
  8. LISINOPRIL HCTZ [Concomitant]
     Active Substance: HYDROCHLOROTHIAZIDE\LISINOPRIL
     Indication: PRODUCT USED FOR UNKNOWN INDICATION
     Dosage: 20-12.5,
  9. LANTUS [Concomitant]
     Active Substance: INSULIN GLARGINE
     Indication: PRODUCT USED FOR UNKNOWN INDICATION
     Dosage: AT BED TIME
  10. XIFAXAN [Suspect]
     Active Substance: RIFAXIMIN
     Indication: AMMONIA ABNORMAL
     Route: 048
     Dates: start: 20171001, end: 20171004
  11. LASIX [Concomitant]
     Active Substance: FUROSEMIDE
     Indication: PRODUCT USED FOR UNKNOWN INDICATION
     Route: 048
  12. INTEGRA [Concomitant]
     Active Substance: DIETARY SUPPLEMENT
     Indication: PRODUCT USED FOR UNKNOWN INDICATION
     Dosage: 425-5-40- 3 MG.
     Route: 048
  13. NASONEX [Concomitant]
     Active Substance: MOMETASONE FUROATE
     Indication: PRODUCT USED FOR UNKNOWN INDICATION

REACTIONS (9)
  - Liver disorder [Unknown]
  - Constipation [Recovering/Resolving]
  - Vomiting [Recovering/Resolving]
  - Cerebral disorder [Unknown]
  - Off label use [Recovered/Resolved]
  - Diarrhoea [Recovering/Resolving]
  - Nausea [Recovering/Resolving]
  - Treatment noncompliance [Unknown]
  - Ammonia increased [Recovering/Resolving]

NARRATIVE: CASE EVENT DATE: 20141009
